FAERS Safety Report 17273526 (Version 6)
Quarter: 2023Q4

REPORT INFORMATION
  Report Type: Report from Study
  Country: JP (occurrence: JP)
  Receive Date: 20200115
  Receipt Date: 20231116
  Transmission Date: 20240110
  Serious: Yes (Hospitalization)
  Sender: FDA-Public Use
  Company Number: JP-ABBVIE-20K-087-3231991-00

PATIENT
  Age: 69 Year
  Sex: Female
  Weight: 39 kg

DRUGS (3)
  1. CARBIDOPA\LEVODOPA [Suspect]
     Active Substance: CARBIDOPA\LEVODOPA
     Indication: Parkinson^s disease
     Dosage: MD: 4 ML, CD: 3.1 ML/HR ? 16 HRS
     Route: 050
     Dates: start: 20181205, end: 20200221
  2. CARBIDOPA\LEVODOPA [Suspect]
     Active Substance: CARBIDOPA\LEVODOPA
  3. ROTIGOTINE [Concomitant]
     Active Substance: ROTIGOTINE
     Indication: Parkinson^s disease
     Dosage: 27 MILLIGRAM
     Route: 062

REACTIONS (3)
  - Embedded device [Recovering/Resolving]
  - Stoma site discharge [Unknown]
  - Device dislocation [Unknown]

NARRATIVE: CASE EVENT DATE: 20200109
